FAERS Safety Report 20940568 (Version 1)
Quarter: 2022Q2

REPORT INFORMATION
  Report Type: Spontaneous
  Country: CN (occurrence: CN)
  Receive Date: 20220609
  Receipt Date: 20220609
  Transmission Date: 20220721
  Serious: Yes (Hospitalization)
  Sender: FDA-Public Use
  Company Number: CN-ORGANON-O2206CHN000205

PATIENT
  Age: 68 Year
  Sex: Female
  Weight: 52 kg

DRUGS (14)
  1. EZETIMIBE [Suspect]
     Active Substance: EZETIMIBE
     Indication: Lipids abnormal
     Dosage: 10 MG, QD
     Route: 048
     Dates: start: 20220508, end: 20220530
  2. EZETIMIBE [Suspect]
     Active Substance: EZETIMIBE
     Indication: Arterial stent insertion
  3. TICAGRELOR [Concomitant]
     Active Substance: TICAGRELOR
     Indication: Antiplatelet therapy
     Dosage: 1 TABLET, BID
     Route: 048
     Dates: start: 20220508, end: 20220601
  4. TICAGRELOR [Concomitant]
     Active Substance: TICAGRELOR
     Indication: Arterial stent insertion
  5. ROSUVASTATIN CALCIUM [Concomitant]
     Active Substance: ROSUVASTATIN CALCIUM
     Indication: Lipids abnormal
     Dosage: 1 TABLET, QD
     Route: 048
     Dates: start: 20220508, end: 20220601
  6. ROSUVASTATIN CALCIUM [Concomitant]
     Active Substance: ROSUVASTATIN CALCIUM
     Indication: Arterial stent insertion
  7. ASPIRIN [Concomitant]
     Active Substance: ASPIRIN
     Indication: Antiplatelet therapy
     Dosage: 1 TABLET, QD
     Route: 048
     Dates: start: 20220508, end: 20220601
  8. ASPIRIN [Concomitant]
     Active Substance: ASPIRIN
     Indication: Arterial stent insertion
  9. ENALAPRIL MALEATE AND FOLIC ACID [Concomitant]
     Indication: Hypertension
     Dosage: 1 TABLET, QD
     Route: 048
     Dates: start: 20220508, end: 20220601
  10. ENALAPRIL MALEATE AND FOLIC ACID [Concomitant]
     Indication: Arterial stent insertion
  11. METOPROLOL SUCCINATE [Concomitant]
     Active Substance: METOPROLOL SUCCINATE
     Indication: Ventricular remodelling
     Dosage: UNK
  12. METOPROLOL SUCCINATE [Concomitant]
     Active Substance: METOPROLOL SUCCINATE
     Indication: Hypertension
  13. HYDROXYCHLOROQUINE SULFATE [Concomitant]
     Active Substance: HYDROXYCHLOROQUINE SULFATE
     Indication: Rheumatoid arthritis
     Dosage: UNK
  14. ATORVASTATIN CALCIUM ANHYDROUS [Concomitant]
     Active Substance: ATORVASTATIN CALCIUM ANHYDROUS
     Indication: Lipids abnormal
     Dosage: UNK

REACTIONS (1)
  - Gastroenteritis [Recovering/Resolving]

NARRATIVE: CASE EVENT DATE: 20220509
